FAERS Safety Report 25267584 (Version 1)
Quarter: 2025Q2

REPORT INFORMATION
  Report Type: Spontaneous
  Country: US (occurrence: US)
  Receive Date: 20250505
  Receipt Date: 20250505
  Transmission Date: 20250717
  Serious: Yes (Other)
  Sender: Hibrow Healthcare
  Company Number: US-Hibrow Healthcare Private Ltd-2176155

PATIENT

DRUGS (6)
  1. BACLOFEN [Suspect]
     Active Substance: BACLOFEN
     Indication: Product used for unknown indication
  2. PEPCID [Suspect]
     Active Substance: FAMOTIDINE
  3. NALTREXONE [Suspect]
     Active Substance: NALTREXONE
  4. CYMBALTA [Suspect]
     Active Substance: DULOXETINE HYDROCHLORIDE
  5. NICOTINE [Suspect]
     Active Substance: NICOTINE
  6. GABAPENTIN [Suspect]
     Active Substance: GABAPENTIN

REACTIONS (7)
  - Deafness [Unknown]
  - Dyspnoea [Unknown]
  - Myalgia [Unknown]
  - Tinnitus [Unknown]
  - Small fibre neuropathy [Unknown]
  - Condition aggravated [Unknown]
  - Electric shock sensation [Unknown]
